FAERS Safety Report 9614685 (Version 2)
Quarter: 2013Q4

REPORT INFORMATION
  Report Type: Spontaneous
  Country: US (occurrence: US)
  Receive Date: 20131011
  Receipt Date: 20131011
  Transmission Date: 20140711
  Serious: Yes (Hospitalization)
  Sender: FDA-Public Use
  Company Number: US-DENDREON CORPORATION-2013PROUSA03197

PATIENT
  Age: 78 Year
  Sex: Male
  Weight: 65.6 kg

DRUGS (1)
  1. PROVENGE [Suspect]
     Indication: PROSTATE CANCER METASTATIC
     Dosage: 250 ML, SINGLE
     Route: 042
     Dates: start: 20130927, end: 20130927

REACTIONS (4)
  - Hip fracture [Unknown]
  - Balance disorder [Unknown]
  - Confusional state [Unknown]
  - Chills [Unknown]
